FAERS Safety Report 4861555-6 (Version None)
Quarter: 2005Q4

REPORT INFORMATION
  Report Type: 
  Country: None (occurrence: None)
  Receive Date: 20051129
  Receipt Date: 20050928
  Transmission Date: 20060501
  Serious: Yes (Life-Threatening, Hospitalization, Disabling)
  Sender: FDA-Public Use
  Company Number: WAES 0509USA04632

PATIENT
  Age: 89 Year
  Sex: Female

DRUGS (1)
  1. FOSAMAX [Suspect]
     Indication: OSTEOPOROSIS
     Dosage: 70 MG / WKY / PO
     Route: 048
     Dates: start: 20020901, end: 20050901

REACTIONS (2)
  - OSTEONECROSIS [None]
  - TOOTH INFECTION [None]
